FAERS Safety Report 25154722 (Version 1)
Quarter: 2025Q2

REPORT INFORMATION
  Report Type: Report from Study
  Country: US (occurrence: US)
  Receive Date: 20250403
  Receipt Date: 20250403
  Transmission Date: 20250717
  Serious: Yes (Death)
  Sender: DAIICHI
  Company Number: US-DSJP-DS-2025-134005-US

PATIENT
  Age: 54 Year
  Sex: Male

DRUGS (1)
  1. ENHERTU [Suspect]
     Active Substance: FAM-TRASTUZUMAB DERUXTECAN-NXKI
     Indication: Gastric cancer
     Dosage: 394 MG, ONCE EVERY 3 WK
     Route: 042
     Dates: start: 20250320, end: 20250322

REACTIONS (1)
  - Death [Fatal]

NARRATIVE: CASE EVENT DATE: 20250322
